FAERS Safety Report 12798951 (Version 1)
Quarter: 2016Q3

REPORT INFORMATION
  Report Type: Spontaneous
  Country: US (occurrence: US)
  Receive Date: 20160912
  Receipt Date: 20160912
  Transmission Date: 20161109
  Serious: Yes (Other)
  Sender: FDA-Public Use
  Company Number: None

PATIENT
  Sex: Female
  Weight: 70 kg

DRUGS (13)
  1. NTG MEN SENSITIVE SKIN SHAVE CREAM [Suspect]
     Active Substance: COSMETICS
     Indication: THERAPEUTIC SKIN CARE TOPICAL
     Dosage: DIME, AKTERNATE DAY
     Route: 061
  2. NEUTROGENA CLEAR FACE BREAK OUT FREE SUNSCREEN BROAD SPECTRUM SPF30 [Suspect]
     Active Substance: AVOBENZONE\HOMOSALATE\OCTISALATE\OCTOCRYLENE\OXYBENZONE
     Indication: PROPHYLAXIS AGAINST SOLAR RADIATION
     Route: 061
  3. BLOOD PRESSURE MEDICATION [Concomitant]
     Active Substance: UNSPECIFIED INGREDIENT
  4. NEUTROGENA MEN SENSITIVE SKIN SHAVE CREAM [Suspect]
     Active Substance: COSMETICS
     Indication: THERAPEUTIC SKIN CARE TOPICAL
     Dosage: DIME SIZE AMOUNT??
     Route: 061
  5. AVEENO STRESS RELIEF BODY WASH [Suspect]
     Active Substance: OATMEAL
     Indication: REMOVAL OF INERT MATTER FROM SKIN OR SUBCUTANEOUS TISSUE
  6. AVEENO ACTIVE NATURALS POSITIVELY RADIANT DAILY MOISTURIZER SUNSCREEN BROAD SPECTRUM SPF15 [Suspect]
     Active Substance: AVOBENZONE\OCTINOXATE\OCTISALATE
     Indication: DRY SKIN PROPHYLAXIS
     Dosage: DIME SIZE AMOUNT
     Route: 061
  7. AVEENO CLEAR COMPLEXION FOAMING CLEANSER [Suspect]
     Active Substance: SALICYLIC ACID
     Indication: REMOVAL OF INERT MATTER FROM SKIN OR SUBCUTANEOUS TISSUE
     Route: 061
  8. AVEENO ACTIVE NATURALS POSITIVELY RADIANT DAILY MOISTURIZER SUNSCREEN BROAD SPECTRUM SPF15 [Suspect]
     Active Substance: AVOBENZONE\OCTINOXATE\OCTISALATE
     Indication: DRY SKIN PROPHYLAXIS
     Dosage: DIME SIZE AMOUNT
     Route: 061
  9. NATURAL SUPPLEMENTS [Concomitant]
  10. AVEENO CLEAR COMPLEXION FOAMING CLEANSER [Suspect]
     Active Substance: SALICYLIC ACID
     Indication: REMOVAL OF INERT MATTER FROM SKIN OR SUBCUTANEOUS TISSUE
     Route: 061
  11. NEUTROGENA CLEAR FACE BREAK OUT FREE SUNSCREEN BROAD SPECTRUM SPF30 [Suspect]
     Active Substance: AVOBENZONE\HOMOSALATE\OCTISALATE\OCTOCRYLENE\OXYBENZONE
     Indication: PROPHYLAXIS AGAINST SOLAR RADIATION
     Route: 061
  12. AVEENO STRESS RELIEF BODY WASH [Suspect]
     Active Substance: OATMEAL
     Indication: REMOVAL OF INERT MATTER FROM SKIN OR SUBCUTANEOUS TISSUE
  13. CHLOESTEROL MEDICATION [Concomitant]

REACTIONS (5)
  - Rash papular [None]
  - Basal cell carcinoma [None]
  - Dermatitis contact [None]
  - Product lot number issue [None]
  - Product expiration date issue [None]
